FAERS Safety Report 11053803 (Version 2)
Quarter: 2015Q2

REPORT INFORMATION
  Report Type: Spontaneous
  Country: US (occurrence: US)
  Receive Date: 20150421
  Receipt Date: 20150525
  Transmission Date: 20150821
  Serious: No
  Sender: FDA-Public Use
  Company Number: US-JNJFOC-20150308854

PATIENT
  Age: 26 Year
  Sex: Male
  Weight: 38.1 kg

DRUGS (1)
  1. RISPERDAL CONSTA [Suspect]
     Active Substance: RISPERIDONE
     Indication: PSYCHOTIC DISORDER
     Route: 030
     Dates: start: 201410, end: 201412

REACTIONS (4)
  - Anxiety [Recovered/Resolved]
  - Erectile dysfunction [Not Recovered/Not Resolved]
  - Paranoia [Recovered/Resolved]
  - Hallucination [Recovered/Resolved]

NARRATIVE: CASE EVENT DATE: 201410
